FAERS Safety Report 9415748 (Version 4)
Quarter: 2013Q3

REPORT INFORMATION
  Report Type: Spontaneous
  Country: CA (occurrence: CA)
  Receive Date: 20130723
  Receipt Date: 20130910
  Transmission Date: 20140515
  Serious: Yes (Disabling)
  Sender: FDA-Public Use
  Company Number: CA-ABBOTT-13X-028-1122510-00

PATIENT
  Age: 60 Year
  Sex: Female
  Weight: 72.64 kg

DRUGS (6)
  1. EPIVAL [Suspect]
     Indication: PRODUCT USED FOR UNKNOWN INDICATION
     Dates: start: 1994
  2. RISPERIDONE [Suspect]
     Indication: ANXIOLYTIC THERAPY
     Dates: start: 1994
  3. RISPERIDONE [Suspect]
     Indication: SEDATIVE THERAPY
     Dates: start: 2012
  4. RISPERIDONE [Suspect]
  5. LIPITOR [Concomitant]
     Indication: PRODUCT USED FOR UNKNOWN INDICATION
  6. CELEXA [Concomitant]
     Indication: PRODUCT USED FOR UNKNOWN INDICATION

REACTIONS (5)
  - Diabetes mellitus [Unknown]
  - Constipation [Unknown]
  - Hypersomnia [Unknown]
  - Urinary incontinence [Unknown]
  - Weight increased [Unknown]
